FAERS Safety Report 7141443-5 (Version None)
Quarter: 2010Q4

REPORT INFORMATION
  Report Type: 
  Country: None (occurrence: None)
  Receive Date: 20101207
  Receipt Date: 20101129
  Transmission Date: 20110411
  Serious: Yes (Hospitalization)
  Sender: FDA-Public Use
  Company Number: US-PERRIGO-10US015112

PATIENT
  Age: 19 Year
  Sex: Male

DRUGS (1)
  1. ACETAMINOPHEN SLOW RELEASE [Suspect]
     Indication: INTENTIONAL OVERDOSE
     Dosage: UNK
     Route: 048

REACTIONS (11)
  - ALANINE AMINOTRANSFERASE INCREASED [None]
  - BLOOD LACTIC ACID INCREASED [None]
  - BLOOD PYRUVIC ACID INCREASED [None]
  - COMA [None]
  - HYPERTRANSAMINASAEMIA [None]
  - HYPOTENSION [None]
  - INTENTIONAL OVERDOSE [None]
  - LACTATE PYRUVATE RATIO INCREASED [None]
  - LACTIC ACIDOSIS [None]
  - OPTIC ATROPHY [None]
  - PUPIL FIXED [None]
